FAERS Safety Report 16794240 (Version 1)
Quarter: 2019Q3

REPORT INFORMATION
  Report Type: Report from Study
  Country: US (occurrence: US)
  Receive Date: 20190911
  Receipt Date: 20190911
  Transmission Date: 20191005
  Serious: Yes (Other)
  Sender: FDA-Public Use
  Company Number: US-VIIV HEALTHCARE LIMITED-US2019GSK160017

PATIENT
  Age: 21 Year
  Sex: Male
  Weight: 63.5 kg

DRUGS (25)
  1. BLINDED CABOTEGRAVIR [Suspect]
     Active Substance: CABOTEGRAVIR
     Indication: PROPHYLAXIS AGAINST HIV INFECTION
     Dosage: UNK
     Route: 048
     Dates: start: 20170921, end: 20171129
  2. LIDOCAINE. [Concomitant]
     Active Substance: LIDOCAINE
     Dosage: 80 MG, UNK
  3. SUCCINYLCHOLINE [Concomitant]
     Active Substance: SUCCINYLCHOLINE
     Dosage: 120 MG, UNK
     Route: 042
  4. BLINDED CABOTEGRAVIR [Suspect]
     Active Substance: CABOTEGRAVIR
     Dosage: UNK
     Route: 048
     Dates: start: 20170921
  5. BLINDED EMTRICITABINE [Suspect]
     Active Substance: EMTRICITABINE
     Dosage: UNK
     Route: 030
     Dates: start: 20171129
  6. DEXAMETHASONE. [Concomitant]
     Active Substance: DEXAMETHASONE
     Indication: SWELLING
     Dosage: 8 MG, UNK
  7. FISH OIL [Concomitant]
     Active Substance: FISH OIL
     Indication: PAIN
     Dosage: 1 DF, (EVERY 4 TO 6 HRS)
     Route: 048
  8. NORCO [Concomitant]
     Active Substance: ACETAMINOPHEN\HYDROCODONE BITARTRATE
     Dosage: 1 DF, (EVERY 4 TO 6 HOURS)
     Route: 048
  9. BLINDED TENOFOVIR DISOPROXIL FUMARATE [Suspect]
     Active Substance: TENOFOVIR DISOPROXIL FUMARATE
     Indication: PROPHYLAXIS AGAINST HIV INFECTION
     Dosage: UNK
     Route: 048
     Dates: start: 20170921, end: 20171129
  10. BLINDED TENOFOVIR DISOPROXIL FUMARATE [Suspect]
     Active Substance: TENOFOVIR DISOPROXIL FUMARATE
     Dosage: UNK
     Route: 048
     Dates: start: 20170921
  11. BLINDED EMTRICITABINE [Suspect]
     Active Substance: EMTRICITABINE
     Indication: PROPHYLAXIS AGAINST HIV INFECTION
     Dosage: UNK
     Route: 048
     Dates: start: 20170921, end: 20171129
  12. BLINDED PLACEBO [Suspect]
     Active Substance: INVESTIGATIONAL PRODUCT
     Indication: PROPHYLAXIS AGAINST HIV INFECTION
     Dosage: UNK
     Route: 048
     Dates: start: 20170921, end: 20171129
  13. BLINDED CABOTEGRAVIR [Suspect]
     Active Substance: CABOTEGRAVIR
     Dosage: UNK
     Route: 030
     Dates: start: 20171129
  14. ACETAMINOPHEN. [Concomitant]
     Active Substance: ACETAMINOPHEN
     Indication: PAIN MANAGEMENT
     Dosage: 1000 MG, UNK
     Route: 042
  15. FLUOXETINE [Concomitant]
     Active Substance: FLUOXETINE HYDROCHLORIDE
     Dosage: 1.5 MG, QD
     Route: 048
  16. EPINEPHRINE. [Concomitant]
     Active Substance: EPINEPHRINE
  17. BIOTIN [Concomitant]
     Active Substance: BIOTIN
     Dosage: UNK, QD (2 MONTH)
     Route: 048
  18. BLINDED PLACEBO [Suspect]
     Active Substance: INVESTIGATIONAL PRODUCT
     Dosage: UNK
     Route: 048
     Dates: start: 20170921
  19. GLYCOPYRROLATE. [Concomitant]
     Active Substance: GLYCOPYRROLATE
     Dosage: 0.2 MG, UNK
  20. BLINDED EMTRICITABINE [Suspect]
     Active Substance: EMTRICITABINE
     Dosage: UNK
     Route: 048
     Dates: start: 20170921
  21. BLINDED PLACEBO [Suspect]
     Active Substance: INVESTIGATIONAL PRODUCT
     Dosage: UNK
     Route: 030
     Dates: start: 20171129
  22. SEVOFLURANE. [Concomitant]
     Active Substance: SEVOFLURANE
  23. ONDANSETRON [Concomitant]
     Active Substance: ONDANSETRON
     Indication: NAUSEA
     Dosage: 4 MG, UNK
  24. FISH OIL [Concomitant]
     Active Substance: FISH OIL
     Dosage: 1200 MG, QD
     Route: 048
  25. BLINDED TENOFOVIR DISOPROXIL FUMARATE [Suspect]
     Active Substance: TENOFOVIR DISOPROXIL FUMARATE
     Dosage: UNK
     Route: 030
     Dates: start: 20171129

REACTIONS (1)
  - Seizure [Recovered/Resolved]

NARRATIVE: CASE EVENT DATE: 20180516
